FAERS Safety Report 13668831 (Version 9)
Quarter: 2022Q2

REPORT INFORMATION
  Report Type: Report from Study
  Country: KR (occurrence: None)
  Receive Date: 20170620
  Receipt Date: 20220614
  Transmission Date: 20220721
  Serious: Yes (Hospitalization)
  Sender: FDA-Public Use
  Company Number: KR-ROCHE-1952431

PATIENT
  Age: 49 Year
  Sex: Female
  Weight: 54.5 kg

DRUGS (13)
  1. ATEZOLIZUMAB [Suspect]
     Active Substance: ATEZOLIZUMAB
     Indication: Transitional cell carcinoma
     Dosage: MOST RECENT DOSE PRIOR TO THE EVENT: 02/JUN/2017 STARTING AT 16:23
     Route: 042
     Dates: start: 20170602
  2. GLIMEL (SOUTH KOREA) [Concomitant]
     Indication: Diabetes mellitus
     Route: 048
     Dates: start: 2014
  3. DIABEX [Concomitant]
     Active Substance: METFORMIN HYDROCHLORIDE
     Indication: Diabetes mellitus
     Route: 048
     Dates: start: 2014
  4. JANUVIA [Concomitant]
     Active Substance: SITAGLIPTIN PHOSPHATE
     Indication: Diabetes mellitus
     Route: 048
     Dates: start: 2014
  5. CRESTOR [Concomitant]
     Active Substance: ROSUVASTATIN CALCIUM
     Indication: Hyperlipidaemia
     Route: 048
     Dates: start: 2016
  6. IMIPRAMINE [Concomitant]
     Active Substance: IMIPRAMINE
     Indication: Urine flow decreased
     Route: 048
     Dates: start: 20170419, end: 20170523
  7. MIRABEGRON [Concomitant]
     Active Substance: MIRABEGRON
     Indication: Urine flow decreased
     Route: 048
     Dates: start: 20170419, end: 20170808
  8. GASTER (SOUTH KOREA) [Concomitant]
     Indication: Prophylaxis
     Route: 048
     Dates: start: 20170228
  9. TASNA [Concomitant]
     Indication: Electrolyte imbalance
     Route: 048
     Dates: start: 20170419
  10. VESICARE [Concomitant]
     Active Substance: SOLIFENACIN SUCCINATE
     Indication: Urine flow decreased
     Route: 048
     Dates: start: 20170526
  11. PHAZYME [Concomitant]
     Active Substance: DIMETHICONE 410
     Route: 048
     Dates: start: 20170622
  12. GASTER (SOUTH KOREA) [Concomitant]
     Route: 048
     Dates: start: 20170622
  13. PREDNISOLONE [Concomitant]
     Active Substance: PREDNISOLONE

REACTIONS (1)
  - Systemic immune activation [Recovered/Resolved]

NARRATIVE: CASE EVENT DATE: 20170615
